FAERS Safety Report 13581729 (Version 1)
Quarter: 2017Q2

REPORT INFORMATION
  Report Type: Spontaneous
  Country: CN (occurrence: CN)
  Receive Date: 20170525
  Receipt Date: 20170525
  Transmission Date: 20170830
  Serious: Yes (Hospitalization, Disabling)
  Sender: FDA-Public Use
  Company Number: CN-NOVOPROD-537964

PATIENT
  Age: 56 Year
  Sex: Female
  Weight: 70 kg

DRUGS (2)
  1. NOVOLIN [Suspect]
     Active Substance: INSULIN HUMAN
     Indication: TYPE 2 DIABETES MELLITUS
     Dosage: 54 IU, QD (28 IU IN THE MORNING, AND 26IU IN THE EVENING)
     Route: 058
  2. NOVOLIN [Suspect]
     Active Substance: INSULIN HUMAN
     Dosage: 54 IU, QD (28 IU IN THE MORNING, AND 26IU IN THE EVENING)
     Route: 058

REACTIONS (5)
  - Blood glucose increased [Unknown]
  - Drug ineffective [Unknown]
  - Liver injury [Recovering/Resolving]
  - Product quality issue [Recovered/Resolved]
  - Diabetes mellitus inadequate control [Recovered/Resolved]
